FAERS Safety Report 17507884 (Version 1)
Quarter: 2020Q1

REPORT INFORMATION
  Report Type: Spontaneous
  Country: PL (occurrence: PL)
  Receive Date: 20200306
  Receipt Date: 20200306
  Transmission Date: 20200409
  Serious: Yes (Life-Threatening, Hospitalization, Other)
  Sender: FDA-Public Use
  Company Number: PL-ALKEM LABORATORIES LIMITED-PL-ALKEM-2020-00395

PATIENT
  Age: 44 Year
  Sex: Male
  Weight: 72 kg

DRUGS (6)
  1. PREDNISONE. [Suspect]
     Active Substance: PREDNISONE
     Dosage: 5 MILLIGRAM, OD
     Route: 065
     Dates: start: 20150519
  2. PREDNISONE. [Suspect]
     Active Substance: PREDNISONE
     Indication: IMMUNOSUPPRESSANT DRUG THERAPY
     Dosage: UNKNOWN
     Route: 065
     Dates: start: 19990722, end: 20031210
  3. METHYLPREDNISOLONE. [Suspect]
     Active Substance: METHYLPREDNISOLONE
     Indication: IMMUNOSUPPRESSANT DRUG THERAPY
     Dosage: PULSES
     Route: 065
  4. MYCOPHENOLATE MOFETIL. [Suspect]
     Active Substance: MYCOPHENOLATE MOFETIL
     Indication: IMMUNOSUPPRESSANT DRUG THERAPY
     Dosage: UNKNOWN
     Route: 065
     Dates: start: 19990720, end: 20150217
  5. CICLOSPORINE [Suspect]
     Active Substance: CYCLOSPORINE
     Dosage: UNKNOWN
     Route: 065
     Dates: start: 20160103
  6. CICLOSPORINE [Suspect]
     Active Substance: CYCLOSPORINE
     Indication: IMMUNOSUPPRESSANT DRUG THERAPY
     Dosage: 25 MILLIGRAM, BID
     Route: 065
     Dates: start: 19990720, end: 20151028

REACTIONS (31)
  - Pulmonary hypertension [Recovered/Resolved]
  - Chronic kidney disease [Recovered/Resolved with Sequelae]
  - Splenomegaly [Recovered/Resolved]
  - Pleural effusion [Recovered/Resolved with Sequelae]
  - Pyrexia [Recovered/Resolved]
  - Lung abscess [Recovered/Resolved with Sequelae]
  - Hyperkinetic heart syndrome [Recovering/Resolving]
  - Emphysema [Recovered/Resolved]
  - Pneumonia [Recovered/Resolved with Sequelae]
  - Aortic valve incompetence [Recovered/Resolved]
  - Ascites [Recovered/Resolved with Sequelae]
  - Cardiac failure chronic [Recovered/Resolved]
  - Staphylococcal infection [Recovered/Resolved]
  - Chronic allograft nephropathy [Not Recovered/Not Resolved]
  - Endocarditis [Recovered/Resolved]
  - Aortic stenosis [Recovered/Resolved]
  - Orthopnoea [Recovered/Resolved]
  - C-reactive protein increased [Recovered/Resolved]
  - Blood bilirubin increased [Recovered/Resolved]
  - Cytomegalovirus infection [Recovered/Resolved]
  - Encephalitis fungal [Unknown]
  - Epstein-Barr virus infection [Unknown]
  - Tachycardia [Recovered/Resolved]
  - Anaemia [Recovered/Resolved with Sequelae]
  - Hodgkin^s disease [Unknown]
  - Oral herpes [Recovered/Resolved]
  - Aortic valve disease mixed [Recovered/Resolved]
  - Leukocytosis [Recovered/Resolved]
  - Bronchitis bacterial [Recovered/Resolved with Sequelae]
  - Staphylococcal sepsis [Recovered/Resolved]
  - Transplant failure [Recovered/Resolved with Sequelae]

NARRATIVE: CASE EVENT DATE: 200010
